FAERS Safety Report 13160259 (Version 1)
Quarter: 2017Q1

REPORT INFORMATION
  Report Type: Spontaneous
  Country: US (occurrence: US)
  Receive Date: 20170127
  Receipt Date: 20170127
  Transmission Date: 20170428
  Serious: No
  Sender: FDA-Public Use
  Company Number: GXBR2016US002717

PATIENT
  Sex: Male
  Weight: 64.4 kg

DRUGS (1)
  1. IMIQUIMOD. [Suspect]
     Active Substance: IMIQUIMOD
     Indication: PRECANCEROUS CELLS PRESENT
     Dosage: UNK DF, QD
     Route: 065

REACTIONS (2)
  - Incorrect route of drug administration [Not Recovered/Not Resolved]
  - Cheilitis [Not Recovered/Not Resolved]
